FAERS Safety Report 12444913 (Version 2)
Quarter: 2016Q2

REPORT INFORMATION
  Report Type: Spontaneous
  Country: IT (occurrence: IT)
  Receive Date: 20160607
  Receipt Date: 20160615
  Transmission Date: 20160815
  Serious: Yes (Hospitalization)
  Sender: FDA-Public Use
  Company Number: IT-ASTRAZENECA-2015SF22619

PATIENT
  Age: 26131 Day
  Sex: Male

DRUGS (10)
  1. BRILIQUE [Interacting]
     Active Substance: TICAGRELOR
     Indication: CORONARY ARTERY DISEASE
     Route: 048
  2. CARDIOASPIRIN [Interacting]
     Active Substance: ASPIRIN
     Indication: CORONARY ARTERY DISEASE
     Route: 048
  3. CARDIOASPIRIN [Interacting]
     Active Substance: ASPIRIN
     Indication: VASCULAR DEVICE USER
     Route: 048
  4. BRILIQUE [Suspect]
     Active Substance: TICAGRELOR
     Indication: VASCULAR DEVICE USER
     Route: 048
  5. BRILIQUE [Interacting]
     Active Substance: TICAGRELOR
     Indication: VASCULAR DEVICE USER
     Route: 048
  6. CARDIOASPIRIN [Interacting]
     Active Substance: ASPIRIN
     Indication: CORONARY ARTERY DISEASE
     Route: 048
  7. CARDIOASPIRIN [Interacting]
     Active Substance: ASPIRIN
     Indication: VASCULAR DEVICE USER
     Route: 048
  8. CARDIOASPIRIN [Interacting]
     Active Substance: ASPIRIN
     Indication: VASCULAR DEVICE USER
     Route: 048
  9. BRILIQUE [Interacting]
     Active Substance: TICAGRELOR
     Indication: CORONARY ARTERY DISEASE
     Route: 048
  10. CARDIOASPIRIN [Interacting]
     Active Substance: ASPIRIN
     Indication: CORONARY ARTERY DISEASE
     Route: 048

REACTIONS (4)
  - Melaena [Recovering/Resolving]
  - Drug interaction [Unknown]
  - Erosive duodenitis [Unknown]
  - Gastritis haemorrhagic [Recovering/Resolving]

NARRATIVE: CASE EVENT DATE: 20151111
